FAERS Safety Report 26026405 (Version 2)
Quarter: 2025Q4

REPORT INFORMATION
  Report Type: Spontaneous
  Country: US (occurrence: US)
  Receive Date: 20251111
  Receipt Date: 20251217
  Transmission Date: 20260117
  Serious: No
  Sender: NOVARTIS
  Company Number: US-002147023-NVSC2025US173809

PATIENT
  Age: 44 Year
  Sex: Female
  Weight: 65.77 kg

DRUGS (2)
  1. RHAPSIDO [Suspect]
     Active Substance: REMIBRUTINIB
     Indication: Chronic spontaneous urticaria
     Dosage: 25 MG/KG, BID
     Route: 048
     Dates: start: 20251104
  2. RHAPSIDO [Suspect]
     Active Substance: REMIBRUTINIB
     Dosage: 25 MG, BID
     Route: 048
     Dates: start: 20251214

REACTIONS (5)
  - Nasopharyngitis [Unknown]
  - Sinus congestion [Unknown]
  - Oropharyngeal pain [Unknown]
  - Migraine [Not Recovered/Not Resolved]
  - Urticaria [Unknown]

NARRATIVE: CASE EVENT DATE: 20251107
